APPROVED DRUG PRODUCT: PHENYLEPHRINE HYDROCHLORIDE IN 0.9% SODIUM CHLORIDE
Active Ingredient: PHENYLEPHRINE HYDROCHLORIDE
Strength: 20MG/250ML (0.08MG/ML)
Dosage Form/Route: SOLUTION;INTRAVENOUS
Application: N216830 | Product #001
Applicant: DR REDDYS LABORATORIES SA
Approved: May 30, 2025 | RLD: Yes | RS: Yes | Type: RX